FAERS Safety Report 17850663 (Version 1)
Quarter: 2020Q2

REPORT INFORMATION
  Report Type: Spontaneous
  Country: CA (occurrence: CA)
  Receive Date: 20200602
  Receipt Date: 20200602
  Transmission Date: 20200714
  Serious: Yes (Other)
  Sender: FDA-Public Use
  Company Number: CA-FRESENIUS KABI-FK202005401

PATIENT
  Sex: Female
  Weight: 41 kg

DRUGS (1)
  1. ETOPOSIDE (MANUFACTURER UNKNOWN) [Suspect]
     Active Substance: ETOPOSIDE
     Indication: CERVIX CARCINOMA
     Route: 065

REACTIONS (6)
  - Product use in unapproved indication [Unknown]
  - Cyanosis [Unknown]
  - Throat tightness [Unknown]
  - Loss of consciousness [Unknown]
  - Seizure [Unknown]
  - Blood pressure increased [Unknown]
